FAERS Safety Report 9237488 (Version 2)
Quarter: 2013Q2

REPORT INFORMATION
  Report Type: Spontaneous
  Country: US (occurrence: US)
  Receive Date: 20130417
  Receipt Date: 20130422
  Transmission Date: 20140414
  Serious: No
  Sender: FDA-Public Use
  Company Number: US-TEVA-395405USA

PATIENT
  Age: 59 Year
  Sex: Female

DRUGS (12)
  1. NUVIGIL [Suspect]
     Indication: SOMNOLENCE
     Dates: start: 20130201, end: 20130207
  2. METHADONE [Concomitant]
     Indication: PAIN
     Dosage: 40 MILLIGRAMS DAILY
     Route: 048
  3. DEPAKOTE [Concomitant]
     Indication: HEADACHE
     Dosage: 500 MILLIGRAM DAILY;
     Route: 048
  4. AMBIEN [Concomitant]
     Indication: INSOMNIA
     Dosage: 10 MILLIGRAM DAILY; BEDTIME
     Route: 048
  5. ZOLOFT [Concomitant]
     Indication: DEPRESSION
     Dosage: 300 MILLIGRAM DAILY;
     Route: 048
  6. ESTRADIOL [Concomitant]
     Indication: HORMONE REPLACEMENT THERAPY
     Dosage: 1 MILLIGRAM DAILY;
     Route: 048
  7. FIORICET [Concomitant]
     Indication: BREAKTHROUGH PAIN
     Dosage: 1 GTABLET EVERY 4 HRS AS NEEDED
     Route: 048
  8. SOMA [Concomitant]
     Indication: MUSCLE SPASMS
     Dosage: 1050 MILLIGRAM DAILY;
     Route: 048
  9. ATROVENT [Concomitant]
     Indication: HYPERSENSITIVITY
     Dosage: 1 SPRAY 3 TIMES DAILY
     Route: 045
  10. BENADRYL [Concomitant]
     Indication: HYPERSENSITIVITY
     Dosage: 50 MILLIGRAM DAILY;
     Route: 048
  11. ANTIVERT [Concomitant]
     Indication: DIZZINESS
     Dosage: AS NEEDED
     Route: 048
  12. PROTONIX [Concomitant]
     Indication: GASTROOESOPHAGEAL REFLUX DISEASE
     Dosage: 40 MILLIGRAM DAILY;
     Route: 048
     Dates: start: 20130201

REACTIONS (5)
  - Drug ineffective for unapproved indication [Recovered/Resolved]
  - Hypersomnia [Recovered/Resolved]
  - Nausea [Recovered/Resolved]
  - Headache [Recovered/Resolved]
  - Off label use [Recovered/Resolved]
